FAERS Safety Report 20335303 (Version 2)
Quarter: 2022Q1

REPORT INFORMATION
  Report Type: Spontaneous
  Country: US (occurrence: US)
  Receive Date: 20220114
  Receipt Date: 20220121
  Transmission Date: 20220423
  Serious: No
  Sender: FDA-Public Use
  Company Number: US-GLAXOSMITHKLINE-US2022AMR003409

PATIENT
  Sex: Female

DRUGS (1)
  1. ZEJULA [Suspect]
     Active Substance: NIRAPARIB
     Indication: Ovarian cancer
     Dosage: 100 MG, QD
     Route: 048
     Dates: start: 20210929, end: 20220118

REACTIONS (9)
  - Blood pressure increased [Recovering/Resolving]
  - Blood sodium decreased [Unknown]
  - Nausea [Not Recovered/Not Resolved]
  - Vomiting [Not Recovered/Not Resolved]
  - Headache [Unknown]
  - Blood pressure abnormal [Unknown]
  - Intentional dose omission [Unknown]
  - Off label use [Unknown]
  - Drug ineffective [Unknown]
